FAERS Safety Report 9271976 (Version 3)
Quarter: 2013Q4

REPORT INFORMATION
  Report Type: Report from Study
  Country: CA (occurrence: CA)
  Receive Date: 20130506
  Receipt Date: 20131021
  Transmission Date: 20140711
  Serious: Yes (Hospitalization, Other)
  Sender: FDA-Public Use
  Company Number: CA-JNJFOC-20130402225

PATIENT
  Age: 31 Year
  Sex: Female
  Weight: 71 kg

DRUGS (5)
  1. REMICADE [Suspect]
     Indication: CROHN^S DISEASE
     Route: 042
     Dates: start: 20100915
  2. REMICADE [Suspect]
     Indication: CROHN^S DISEASE
     Route: 042
     Dates: start: 201008
  3. SOLUCORTEF [Concomitant]
     Indication: PRODUCT USED FOR UNKNOWN INDICATION
     Route: 065
  4. IMURAN [Concomitant]
     Indication: PRODUCT USED FOR UNKNOWN INDICATION
     Route: 065
  5. CIPRO [Concomitant]
     Indication: PRODUCT USED FOR UNKNOWN INDICATION
     Route: 065

REACTIONS (7)
  - Staphylococcal infection [Unknown]
  - Cervical dysplasia [Unknown]
  - Melanocytic naevus [Unknown]
  - Crohn^s disease [Unknown]
  - Herpes zoster [Recovering/Resolving]
  - Exposure during pregnancy [Not Recovered/Not Resolved]
  - Cyst [Unknown]
